FAERS Safety Report 6158883-3 (Version None)
Quarter: 2009Q2

REPORT INFORMATION
  Report Type: 
  Country: None (occurrence: None)
  Receive Date: 20090417
  Receipt Date: 20090406
  Transmission Date: 20091009
  Serious: Yes (Life-Threatening, Hospitalization)
  Sender: FDA-Public Use
  Company Number: DK-JNJFOC-20090401711

PATIENT
  Sex: Male

DRUGS (2)
  1. REMICADE [Suspect]
     Indication: CROHN'S DISEASE
     Route: 042
  2. IMUREL [Interacting]
     Indication: CROHN'S DISEASE
     Route: 048

REACTIONS (2)
  - DRUG INTERACTION [None]
  - METASTATIC MALIGNANT MELANOMA [None]
